FAERS Safety Report 5662170-7 (Version None)
Quarter: 2008Q1

REPORT INFORMATION
  Report Type: 
  Country: None (occurrence: None)
  Receive Date: 20080310
  Receipt Date: 20080310
  Transmission Date: 20080703
  Serious: No
  Sender: FDA-Public Use
  Company Number: None

PATIENT
  Sex: Female
  Weight: 128.18 kg

DRUGS (1)
  1. FEMARA [Suspect]
     Dosage: 2.5 MG

REACTIONS (2)
  - CONDITION AGGRAVATED [None]
  - PSORIASIS [None]
